FAERS Safety Report 5251271-3 (Version None)
Quarter: 2007Q1

REPORT INFORMATION
  Report Type: 
  Country: None (occurrence: None)
  Receive Date: 20070228
  Receipt Date: 20070103
  Transmission Date: 20070707
  Serious: No
  Sender: FDA-Public Use
  Company Number: US-GLAXOSMITHKLINE-A0632307A

PATIENT
  Age: 5 Year
  Sex: Female

DRUGS (5)
  1. LAMICTAL [Suspect]
     Indication: EPILEPSY
     Dosage: 25MG UNKNOWN
     Route: 048
  2. SINGULAIR [Concomitant]
  3. PULMICORT [Concomitant]
  4. ALBUTEROL [Concomitant]
  5. ZARONTIN [Concomitant]

REACTIONS (2)
  - DRUG ADMINISTRATION ERROR [None]
  - PHARMACEUTICAL PRODUCT COMPLAINT [None]
